FAERS Safety Report 4767942-9 (Version None)
Quarter: 2005Q3

REPORT INFORMATION
  Report Type: 
  Country: None (occurrence: None)
  Receive Date: 20050913
  Receipt Date: 20050829
  Transmission Date: 20060218
  Serious: Yes (Other)
  Sender: FDA-Public Use
  Company Number: HQWYE230501SEP05

PATIENT
  Age: 74 Year
  Sex: Female
  Weight: 58 kg

DRUGS (3)
  1. MYLOTARG [Suspect]
     Indication: ACUTE MYELOID LEUKAEMIA
     Dosage: 9.6 MG 1X PER 1 DAY, INTRAVENOUS; 6.4 MG 1X PER 1 DAY, INTRAVENOUS
     Route: 042
     Dates: start: 20050728, end: 20050728
  2. MYLOTARG [Suspect]
     Indication: ACUTE MYELOID LEUKAEMIA
     Dosage: 9.6 MG 1X PER 1 DAY, INTRAVENOUS; 6.4 MG 1X PER 1 DAY, INTRAVENOUS
     Route: 042
     Dates: start: 20050804, end: 20050804
  3. CYTARABINE [Concomitant]

REACTIONS (1)
  - ASPARTATE AMINOTRANSFERASE INCREASED [None]
